FAERS Safety Report 16750321 (Version 2)
Quarter: 2021Q2

REPORT INFORMATION
  Report Type: Spontaneous
  Country: US (occurrence: US)
  Receive Date: 20190828
  Receipt Date: 20210508
  Transmission Date: 20210716
  Serious: No
  Sender: FDA-Public Use
  Company Number: US-ASTRAZENECA-2019SF09151

PATIENT
  Age: 18794 Day
  Sex: Female
  Weight: 75.8 kg

DRUGS (3)
  1. METFORMIN [Concomitant]
     Active Substance: METFORMIN HYDROCHLORIDE
     Indication: TYPE 2 DIABETES MELLITUS
     Dosage: 2 YEAR AGO
     Route: 048
  2. BYDUREON BCISE [Suspect]
     Active Substance: EXENATIDE
     Indication: TYPE 2 DIABETES MELLITUS
     Route: 058
     Dates: start: 201711
  3. XOLAIR [Concomitant]
     Active Substance: OMALIZUMAB
     Indication: URTICARIA CHRONIC
     Dosage: 1 YEAR AGO
     Route: 058

REACTIONS (7)
  - Injection site haemorrhage [Recovered/Resolved]
  - Eczema [Unknown]
  - Blood glucose fluctuation [Not Recovered/Not Resolved]
  - Injection site pain [Unknown]
  - Incorrect dose administered [Recovering/Resolving]
  - Device leakage [Unknown]
  - Hyperhidrosis [Unknown]

NARRATIVE: CASE EVENT DATE: 20171124
